FAERS Safety Report 9344225 (Version 1)
Quarter: 2013Q2

REPORT INFORMATION
  Report Type: Spontaneous
  Country: ES (occurrence: ES)
  Receive Date: 20130612
  Receipt Date: 20130612
  Transmission Date: 20140414
  Serious: Yes (Other)
  Sender: FDA-Public Use
  Company Number: ES-ASTRAZENECA-2013SE40550

PATIENT
  Age: 49 Year
  Sex: Male

DRUGS (4)
  1. VIMOVO [Suspect]
     Indication: BACK PAIN
     Route: 048
     Dates: start: 201212, end: 201212
  2. VIMOVO [Suspect]
     Indication: MYALGIA
     Route: 048
     Dates: start: 201212, end: 201212
  3. VIMOVO [Suspect]
     Indication: BACK PAIN
     Dosage: 500 MG/20 MG
     Route: 048
     Dates: start: 201305, end: 201305
  4. VIMOVO [Suspect]
     Indication: MYALGIA
     Dosage: 500 MG/20 MG
     Route: 048
     Dates: start: 201305, end: 201305

REACTIONS (1)
  - Balanitis [Unknown]
